FAERS Safety Report 8271042-3 (Version None)
Quarter: 2012Q1

REPORT INFORMATION
  Report Type: 
  Country: None (occurrence: None)
  Receive Date: 20120327
  Receipt Date: 20090915
  Transmission Date: 20120608
  Serious: Yes (Disabling, Other)
  Sender: FDA-Public Use
  Company Number: PHEH2009US09359

PATIENT
  Age: 53 Year
  Sex: Female

DRUGS (2)
  1. ALLOPURINOL [Concomitant]
  2. GLEEVEC [Suspect]
     Indication: CHRONIC MYELOID LEUKAEMIA
     Dosage: 400 MG, QD, ORAL
     Route: 048
     Dates: start: 20090409, end: 20090810

REACTIONS (9)
  - HEADACHE [None]
  - PRURITUS [None]
  - PLEURITIC PAIN [None]
  - PAROSMIA [None]
  - HAEMATOCHEZIA [None]
  - CONSTIPATION [None]
  - THROAT IRRITATION [None]
  - DYSPNOEA [None]
  - MUSCLE SPASMS [None]
